FAERS Safety Report 5066407-7 (Version None)
Quarter: 2006Q3

REPORT INFORMATION
  Report Type: 
  Country: None (occurrence: None)
  Receive Date: 20060714
  Receipt Date: 20060519
  Transmission Date: 20061208
  Serious: No
  Sender: FDA-Public Use
  Company Number: 2006SP002118

PATIENT
  Sex: Male

DRUGS (6)
  1. LUNESTA [Suspect]
     Indication: INSOMNIA
     Dosage: 3 MG PRN ORAL
     Route: 048
     Dates: start: 20060101
  2. LEXAPRO [Concomitant]
  3. ADDERALL 10 [Concomitant]
  4. BUPROPION HCL [Concomitant]
  5. ROZEREN [Concomitant]
  6. UROXATRAL [Concomitant]

REACTIONS (1)
  - HEPATIC ENZYME INCREASED [None]
